FAERS Safety Report 7948430-5 (Version None)
Quarter: 2011Q4

REPORT INFORMATION
  Report Type: 
  Country: None (occurrence: None)
  Receive Date: 20111130
  Receipt Date: 20111116
  Transmission Date: 20120403
  Serious: Yes (Hospitalization)
  Sender: FDA-Public Use
  Company Number: NL-CELGENEUS-114-21880-11112432

PATIENT
  Sex: Male

DRUGS (2)
  1. DEXAMETHASONE [Concomitant]
     Route: 065
     Dates: start: 20111001
  2. REVLIMID [Suspect]
     Route: 048
     Dates: start: 20111001

REACTIONS (1)
  - CARDIAC DISCOMFORT [None]
